FAERS Safety Report 8443546 (Version 2)
Quarter: 2014Q4

REPORT INFORMATION
  Report Type: Spontaneous
  Country: US (occurrence: US)
  Receive Date: 20120306
  Receipt Date: 20141014
  Transmission Date: 20150529
  Serious: Yes (Life-Threatening, Hospitalization)
  Sender: FDA-Public Use
  Company Number: US-BAYER-2012-021584

PATIENT
  Age: 51 Year
  Sex: Female
  Weight: 72.11 kg

DRUGS (14)
  1. DITROPAN [Concomitant]
     Active Substance: OXYBUTYNIN CHLORIDE
  2. THIAMINE [Concomitant]
     Active Substance: THIAMINE
  3. VITAMIN K [Concomitant]
     Active Substance: PHYTONADIONE
  4. CITALOPRAM [Concomitant]
     Active Substance: CITALOPRAM HYDROBROMIDE
     Dosage: 20 MG, BID
     Route: 048
  5. IBUPROFEN. [Concomitant]
     Active Substance: IBUPROFEN
  6. OMEPRAZOLE. [Concomitant]
     Active Substance: OMEPRAZOLE
  7. OCELLA [Suspect]
     Active Substance: DROSPIRENONE\ETHINYL ESTRADIOL
     Dosage: UNK
  8. OXYBUTYNIN CHLORIDE. [Concomitant]
     Active Substance: OXYBUTYNIN CHLORIDE
     Indication: BLADDER SPASM
     Dosage: 5 MG, BID
     Route: 048
  9. XANAX [Concomitant]
     Active Substance: ALPRAZOLAM
     Indication: PANIC ATTACK
  10. YASMIN [Suspect]
     Active Substance: DROSPIRENONE\ETHINYL ESTRADIOL
  11. CELEXA [Concomitant]
     Active Substance: CITALOPRAM HYDROBROMIDE
  12. FOLIC ACID. [Concomitant]
     Active Substance: FOLIC ACID
  13. YAZ [Suspect]
     Active Substance: DROSPIRENONE\ETHINYL ESTRADIOL
     Dosage: UNK
  14. CARAFATE [Concomitant]
     Active Substance: SUCRALFATE

REACTIONS (6)
  - Deep vein thrombosis [None]
  - Anxiety [None]
  - Anhedonia [None]
  - Pain [None]
  - Pelvic venous thrombosis [None]
  - General physical health deterioration [None]

NARRATIVE: CASE EVENT DATE: 20110606
